FAERS Safety Report 25338018 (Version 1)
Quarter: 2025Q2

REPORT INFORMATION
  Report Type: Spontaneous
  Country: US (occurrence: US)
  Receive Date: 20250520
  Receipt Date: 20250520
  Transmission Date: 20250717
  Serious: No
  Sender: CARDINAL HEALTH
  Company Number: US-Cardinal Health 414-NPHS-AE-24-31

PATIENT
  Age: 71 Year
  Sex: Female
  Weight: 77.1 kg

DRUGS (9)
  1. LEXISCAN [Concomitant]
     Active Substance: REGADENOSON
     Route: 042
     Dates: start: 20240315, end: 20240315
  2. HYDRALAZINE [Concomitant]
     Active Substance: HYDRALAZINE HYDROCHLORIDE
     Indication: Hypertension
  3. VALSARTAN [Concomitant]
     Active Substance: VALSARTAN
     Indication: Hypertension
  4. UNSPECIFIED INGREDIENT [Concomitant]
     Active Substance: UNSPECIFIED INGREDIENT
  5. Algae Cal [Concomitant]
     Indication: Osteoporosis
  6. ADEMETIONINE [Concomitant]
     Active Substance: ADEMETIONINE
     Indication: Bursitis
  7. ELIQUIS [Suspect]
     Active Substance: APIXABAN
  8. KIT FOR THE PREPARATION OF TECHNETIUM TC99M SESTAMIBI [Suspect]
     Active Substance: TECHNETIUM TC-99M SESTAMIBI
     Indication: Scan myocardial perfusion
     Route: 065
     Dates: start: 20240315, end: 20240315
  9. KIT FOR THE PREPARATION OF TECHNETIUM TC99M SESTAMIBI [Suspect]
     Active Substance: TECHNETIUM TC-99M SESTAMIBI
     Indication: Scan myocardial perfusion
     Route: 065
     Dates: start: 20240315, end: 20240315

REACTIONS (5)
  - Atrial fibrillation [Not Recovered/Not Resolved]
  - Fatigue [Not Recovered/Not Resolved]
  - Feeling abnormal [Not Recovered/Not Resolved]
  - Dyspnoea [Not Recovered/Not Resolved]
  - Feeling abnormal [Recovered/Resolved]

NARRATIVE: CASE EVENT DATE: 20240315
